FAERS Safety Report 4368829-6 (Version None)
Quarter: 2004Q2

REPORT INFORMATION
  Report Type: 
  Country: None (occurrence: None)
  Receive Date: 20040528
  Receipt Date: 20040511
  Transmission Date: 20050107
  Serious: Yes (Hospitalization)
  Sender: FDA-Public Use
  Company Number: 138931USA

PATIENT
  Age: 48 Year
  Sex: Female

DRUGS (9)
  1. ADRUCIL [Suspect]
     Indication: CERVIX CARCINOMA
     Dosage: 950 MILLIGRAM DAILY, INTRAVENOUS (NOS)
     Route: 042
     Dates: start: 20020101, end: 20020101
  2. CISPLATIN [Suspect]
     Dosage: 140 MILLIGRAM DAILY INTRAVENOUS (NOS)
     Route: 042
     Dates: start: 20020101, end: 20021201
  3. CELEBREX [Suspect]
     Dosage: 400 MILLIGRAM BID ORAL
     Route: 048
  4. METHADONE HCL [Concomitant]
  5. PREMARIN [Concomitant]
  6. DARVOCET-N 100 [Concomitant]
  7. ATIVAN [Concomitant]
  8. LOMOTIL [Concomitant]
  9. TYLENOL [Concomitant]

REACTIONS (10)
  - BACK PAIN [None]
  - BACTERAEMIA [None]
  - BONE MARROW DEPRESSION [None]
  - DIARRHOEA [None]
  - FATIGUE [None]
  - LUNG NEOPLASM [None]
  - PALMAR-PLANTAR ERYTHRODYSAESTHESIA SYNDROME [None]
  - PROCTALGIA [None]
  - RESPIRATORY TRACT INFECTION FUNGAL [None]
  - STOMATITIS [None]
